FAERS Safety Report 21082737 (Version 2)
Quarter: 2022Q3

REPORT INFORMATION
  Report Type: Report from Study
  Country: IT (occurrence: IT)
  Receive Date: 20220714
  Receipt Date: 20220810
  Transmission Date: 20221027
  Serious: Yes (Other)
  Sender: FDA-Public Use
  Company Number: IT-NOVARTISPH-NVSC2022IT132408

PATIENT
  Sex: Female

DRUGS (1)
  1. COSENTYX [Suspect]
     Active Substance: SECUKINUMAB
     Indication: Product used for unknown indication
     Dosage: 300 MG, QMO
     Route: 065
     Dates: start: 20220406

REACTIONS (7)
  - Hydrocephalus [Unknown]
  - Skin ulcer [Unknown]
  - Gait inability [Unknown]
  - Wound [Unknown]
  - Pain [Unknown]
  - Scab [Unknown]
  - Adverse drug reaction [Unknown]
